FAERS Safety Report 5480753-4 (Version None)
Quarter: 2007Q3

REPORT INFORMATION
  Report Type: 
  Country: None (occurrence: None)
  Receive Date: 20070913
  Receipt Date: 20070510
  Transmission Date: 20080115
  Serious: Yes (Other)
  Sender: FDA-Public Use
  Company Number: PHEH2007US07222

PATIENT
  Age: 71 Year
  Sex: Male

DRUGS (1)
  1. DIOVAN [Suspect]
     Indication: HYPERTENSION
     Dosage: 80MG, QD,; 160MG, QD,; 160MG QAM, 80MG QPM,
     Dates: start: 20070101

REACTIONS (1)
  - BLOOD PRESSURE INADEQUATELY CONTROLLED [None]
